FAERS Safety Report 19025087 (Version 1)
Quarter: 2021Q1

REPORT INFORMATION
  Report Type: Spontaneous
  Country: US (occurrence: US)
  Receive Date: 20210317
  Receipt Date: 20210317
  Transmission Date: 20210420
  Serious: Yes (Hospitalization)
  Sender: FDA-Public Use
  Company Number: None

PATIENT
  Sex: Male

DRUGS (3)
  1. METHOTREXATE. [Suspect]
     Active Substance: METHOTREXATE
     Indication: RHEUMATOID ARTHRITIS
     Dosage: ?          OTHER FREQUENCY:Q7D  X 13 WKS;?
     Route: 048
     Dates: start: 20210226
  2. AMLODIPINE; BISOPRL/HCTZ; CEFPODOXIME; LEUCOVOR; METAXALONE; FLAGYL; [Concomitant]
  3. ORENCIA; PROTONIX;  POT CHLOR ER; TROSPIUM; VIT D [Concomitant]

REACTIONS (2)
  - Insurance issue [None]
  - Product dose omission issue [None]
